FAERS Safety Report 19504197 (Version 4)
Quarter: 2022Q4

REPORT INFORMATION
  Report Type: Spontaneous
  Country: ES (occurrence: ES)
  Receive Date: 20210708
  Receipt Date: 20221114
  Transmission Date: 20230112
  Serious: Yes (Hospitalization)
  Sender: FDA-Public Use
  Company Number: ES-CELLTRION INC.-2021ES009023

PATIENT

DRUGS (6)
  1. RITUXIMAB [Suspect]
     Active Substance: RITUXIMAB
     Indication: Systemic lupus erythematosus
     Dosage: 1 MG/ML
     Route: 042
  2. RITUXIMAB [Suspect]
     Active Substance: RITUXIMAB
     Indication: Rheumatoid arthritis
     Dosage: 1 MG/ML (DOSAGE FORM: UNKNOWN)
     Route: 065
  3. HYDROCORTISONE [Concomitant]
     Active Substance: HYDROCORTISONE
     Dosage: 100 MG
     Route: 042
  4. EPINEPHRINE [Concomitant]
     Active Substance: EPINEPHRINE
     Dosage: 0.3 MG
     Route: 030
  5. MEROPENEM [Concomitant]
     Active Substance: MEROPENEM
     Dosage: 1 G
  6. ALBUTEROL [Concomitant]
     Active Substance: ALBUTEROL
     Dosage: 10 MG

REACTIONS (2)
  - Serum sickness [Recovering/Resolving]
  - Off label use [Unknown]
